FAERS Safety Report 5961035-0 (Version None)
Quarter: 2008Q4

REPORT INFORMATION
  Report Type: 
  Country: None (occurrence: None)
  Receive Date: 20081121
  Receipt Date: 20081001
  Transmission Date: 20090506
  Serious: No
  Sender: FDA-Public Use
  Company Number: A0744697A

PATIENT
  Age: 80 Year
  Sex: Female

DRUGS (11)
  1. LANOXIN [Suspect]
     Indication: ATRIAL FIBRILLATION
     Dosage: .25MG PER DAY
     Route: 048
     Dates: start: 20080701
  2. CALAN [Concomitant]
     Dosage: 180MG TWICE PER DAY
  3. UNKNOWN MEDICATION [Concomitant]
  4. RHYTHMOL [Concomitant]
     Dosage: 225MG THREE TIMES PER DAY
  5. ZANTAC [Concomitant]
     Dosage: 150MG TWICE PER DAY
  6. ACTONEL [Concomitant]
  7. TEKTURNA [Concomitant]
     Dosage: 150MG TWICE PER DAY
  8. ALDACTONE [Concomitant]
     Dosage: 25MG PER DAY
  9. WELCHOL [Concomitant]
  10. ASPIRIN [Concomitant]
     Dosage: 325MG PER DAY
  11. CLARINEX [Concomitant]
     Dosage: 5MG PER DAY

REACTIONS (3)
  - ABDOMINAL PAIN UPPER [None]
  - GASTROINTESTINAL PAIN [None]
  - HEART RATE INCREASED [None]
